FAERS Safety Report 4629262-2 (Version None)
Quarter: 2005Q2

REPORT INFORMATION
  Report Type: 
  Country: None (occurrence: None)
  Receive Date: 20050405
  Receipt Date: 20050324
  Transmission Date: 20051028
  Serious: Yes (Other)
  Sender: FDA-Public Use
  Company Number: 2005049492

PATIENT
  Age: 73 Year
  Sex: Female
  Weight: 63.5036 kg

DRUGS (13)
  1. NEURONTIN [Suspect]
     Indication: NEUROPATHY
     Dosage: EVERYDAY, ORAL
     Route: 048
  2. GABAPENTIN [Suspect]
     Indication: NEUROPATHY
     Dosage: 3600 MG (600 MG, 6 IN 1 D),ORAL
     Route: 048
     Dates: start: 20050101, end: 20050101
  3. FUROSEMIDE [Concomitant]
  4. GLIPIZIDE [Concomitant]
  5. FENOFIBRATE [Concomitant]
  6. LANSOPRAZOLE [Concomitant]
  7. ISOSORBIDE (ISOSORBIDE) [Concomitant]
  8. ASPIRIN [Concomitant]
  9. METOPROLOL SUCCINATE [Concomitant]
  10. TRANDOLAPRIL (TRANDOLAPRIL) [Concomitant]
  11. NORTRIPTYLINE HCL [Concomitant]
  12. WARFARIN SODIUM [Concomitant]
  13. METFORMIM HYDROCHLORIDE (METFORMIN HYDROCHLORIDE) [Concomitant]

REACTIONS (4)
  - ABASIA [None]
  - DRUG INEFFECTIVE [None]
  - NEUROPATHY [None]
  - PHARMACEUTICAL PRODUCT COMPLAINT [None]
